FAERS Safety Report 24301718 (Version 1)
Quarter: 2024Q3

REPORT INFORMATION
  Report Type: Spontaneous
  Country: CN (occurrence: CN)
  Receive Date: 20240910
  Receipt Date: 20240910
  Transmission Date: 20241017
  Serious: Yes (Hospitalization, Other)
  Sender: ACCORD
  Company Number: None

PATIENT
  Age: 50 Year
  Sex: Male
  Weight: 70 kg

DRUGS (8)
  1. TRASTUZUMAB [Suspect]
     Active Substance: TRASTUZUMAB
     Indication: Adenocarcinoma gastric
     Dosage: 450 MILLIGRAM, QD
     Route: 042
     Dates: start: 20240228, end: 20240228
  2. SINTILIMAB [Suspect]
     Active Substance: SINTILIMAB
     Indication: Adenocarcinoma gastric
     Dosage: 200 MILLIGRAM,  IV DRIP
     Route: 042
     Dates: start: 20240228
  3. OXALIPLATIN [Concomitant]
     Active Substance: OXALIPLATIN
     Indication: Adenocarcinoma gastric
     Dosage: UNK
     Dates: start: 20240228, end: 20240731
  4. CAPECITABINE [Concomitant]
     Active Substance: CAPECITABINE
     Indication: Adenocarcinoma gastric
     Dosage: UNK
     Dates: start: 20240228, end: 20240731
  5. SINTILIMAB [Suspect]
     Active Substance: SINTILIMAB
     Indication: Adenocarcinoma gastric
     Dosage: 200 MILLIGRAM, QD, IV DRIP
     Dates: start: 20240731, end: 20240731
  6. TRASTUZUMAB [Suspect]
     Active Substance: TRASTUZUMAB
     Indication: Adenocarcinoma gastric
     Dosage: 6 MILLIGRAM/KILOGRAM, QD; IV DRIP
     Route: 042
  7. TRASTUZUMAB [Suspect]
     Active Substance: TRASTUZUMAB
     Indication: Adenocarcinoma gastric
     Dosage: 450 MILLIGRAM, QD IV DRIP
     Route: 042
     Dates: start: 20240731, end: 20240731
  8. TRASTUZUMAB [Suspect]
     Active Substance: TRASTUZUMAB
     Indication: Adenocarcinoma gastric
     Dosage: 30 MILLIGRAM, QD; IV DRIP
     Route: 042
     Dates: start: 20240731, end: 20240731

REACTIONS (1)
  - Blood glucose increased [Unknown]

NARRATIVE: CASE EVENT DATE: 20240731
